FAERS Safety Report 17438802 (Version 1)
Quarter: 2020Q1

REPORT INFORMATION
  Report Type: Report from Study
  Country: ES (occurrence: ES)
  Receive Date: 20200220
  Receipt Date: 20200220
  Transmission Date: 20200409
  Serious: Yes (Hospitalization)
  Sender: FDA-Public Use
  Company Number: ES-TEVA-2020-ES-1188086

PATIENT
  Age: 78 Year
  Sex: Female

DRUGS (2)
  1. EXELON 9,5 MG/24 H PARCHE TRANSDERMICO , 60 PARCHES [Concomitant]
     Indication: DEMENTIA ALZHEIMER^S TYPE
     Dates: start: 201712
  2. PAROXETINA 20 MG 28 COMPRIMIDOS [Suspect]
     Active Substance: PAROXETINE HYDROCHLORIDE
     Dosage: 1/24 HOURS
     Dates: start: 201806, end: 201806

REACTIONS (3)
  - Hyponatraemia [Recovered/Resolved]
  - Depressed mood [Recovered/Resolved]
  - Disorientation [Recovered/Resolved]

NARRATIVE: CASE EVENT DATE: 201806
